FAERS Safety Report 18119027 (Version 1)
Quarter: 2020Q3

REPORT INFORMATION
  Report Type: Spontaneous
  Country: US (occurrence: US)
  Receive Date: 20200805
  Receipt Date: 20200805
  Transmission Date: 20201103
  Serious: Yes (Hospitalization, Other)
  Sender: FDA-Public Use
  Company Number: None

PATIENT
  Sex: Female

DRUGS (27)
  1. ONDANSETRON [Concomitant]
     Active Substance: ONDANSETRON
  2. PROCHLORPER [Concomitant]
  3. VITAMIN D [Concomitant]
     Active Substance: VITAMIN D NOS
  4. CHOLESTYRAM [Concomitant]
     Active Substance: CHOLESTYRAMINE
  5. DILTIAZEM. [Concomitant]
     Active Substance: DILTIAZEM
  6. LIDOCAINE. [Concomitant]
     Active Substance: LIDOCAINE
  7. OXYCODONE [Concomitant]
     Active Substance: OXYCODONE
  8. SODIUM BICAR [Concomitant]
  9. VENLAFAXINE [Concomitant]
     Active Substance: VENLAFAXINE HYDROCHLORIDE
  10. CYCLOBENZAPR [Concomitant]
     Active Substance: CYCLOBENZAPRINE
  11. LISINOPRIL. [Concomitant]
     Active Substance: LISINOPRIL
  12. ATORVASTATIN [Concomitant]
     Active Substance: ATORVASTATIN
  13. ELIQUIS [Concomitant]
     Active Substance: APIXABAN
  14. EZETIMBE [Concomitant]
     Active Substance: EZETIMIBE
  15. LANTUS SOLOS [Concomitant]
  16. VITAMIN D3 [Concomitant]
     Active Substance: CHOLECALCIFEROL
  17. CLONIDINE. [Concomitant]
     Active Substance: CLONIDINE
  18. PANTOPRAZOLE [Concomitant]
     Active Substance: PANTOPRAZOLE
  19. INLYTA [Suspect]
     Active Substance: AXITINIB
     Indication: RENAL CANCER
     Route: 048
     Dates: start: 20200707
  20. FLUCONAZOLE. [Concomitant]
     Active Substance: FLUCONAZOLE
  21. LOPERAMIDE [Concomitant]
     Active Substance: LOPERAMIDE
  22. GABAPENTIN. [Concomitant]
     Active Substance: GABAPENTIN
  23. HUMALOG KWIK [Concomitant]
  24. MIRTAZAPINE. [Concomitant]
     Active Substance: MIRTAZAPINE
  25. NO DRUG NAME [Concomitant]
  26. CARVEDILOL. [Concomitant]
     Active Substance: CARVEDILOL
  27. HYDRALAZINE [Concomitant]
     Active Substance: HYDRALAZINE HYDROCHLORIDE

REACTIONS (4)
  - Metastases to spine [None]
  - Decreased appetite [None]
  - Flushing [None]
  - Renal failure [None]
